FAERS Safety Report 7526791-9 (Version None)
Quarter: 2011Q2

REPORT INFORMATION
  Report Type: 
  Country: None (occurrence: None)
  Receive Date: 20110606
  Receipt Date: 20110530
  Transmission Date: 20111010
  Serious: Yes (Hospitalization)
  Sender: FDA-Public Use
  Company Number: JP-PFIZER INC-2011104859

PATIENT
  Age: 33 Year
  Sex: Female

DRUGS (8)
  1. MIYA BM [Concomitant]
     Indication: COLITIS ULCERATIVE
     Dosage: 100 MG, 3X/DAY
  2. GASCON [Concomitant]
     Dosage: UNK
  3. SULFASALAZINE [Suspect]
     Indication: COLITIS ULCERATIVE
     Dosage: 3000 MG DAILY
     Route: 048
     Dates: start: 20110322
  4. REBAMIPIDE [Concomitant]
     Indication: COLITIS ULCERATIVE
     Dosage: 100 MG, 3X/DAY
  5. SULFASALAZINE [Suspect]
     Dosage: 1500 MG DAILY
     Route: 048
     Dates: start: 20110316, end: 20110321
  6. FLAVERIC [Concomitant]
     Dosage: UNK
  7. TRIMEBUTINE MALEATE [Concomitant]
     Dosage: UNK
  8. MAGNESIUM SULFATE [Concomitant]
     Dosage: UNK

REACTIONS (5)
  - PYREXIA [None]
  - WHITE BLOOD CELL COUNT DECREASED [None]
  - LYMPHADENITIS [None]
  - RASH [None]
  - NASOPHARYNGITIS [None]
